FAERS Safety Report 12992594 (Version 5)
Quarter: 2017Q1

REPORT INFORMATION
  Report Type: Spontaneous
  Country: JP (occurrence: JP)
  Receive Date: 20161202
  Receipt Date: 20170214
  Transmission Date: 20170428
  Serious: Yes (Other)
  Sender: FDA-Public Use
  Company Number: JP-AMGEN-JPNSP2016152588

PATIENT
  Age: 45 Year
  Sex: Male

DRUGS (14)
  1. PROBUCOL [Concomitant]
     Active Substance: PROBUCOL
     Dosage: UNK
  2. EFIENT [Concomitant]
     Active Substance: PRASUGREL HYDROCHLORIDE
     Dosage: 3.75 MG, UNK
  3. LIPITOR [Concomitant]
     Active Substance: ATORVASTATIN CALCIUM
     Indication: HYPERCHOLESTEROLAEMIA
     Dosage: 40 MG, UNK
  4. LORELCO [Concomitant]
     Active Substance: PROBUCOL
     Dosage: 500 MG, UNK
  5. SIGMART [Concomitant]
     Active Substance: NICORANDIL
     Dosage: 15 MG, UNK
  6. MOHRUS L [Concomitant]
     Active Substance: KETOPROFEN
     Dosage: 40 MG, UNK
  7. ZETIA [Concomitant]
     Active Substance: EZETIMIBE
     Dosage: 10 MG, UNK
  8. ATORVASTATIN [Concomitant]
     Active Substance: ATORVASTATIN
     Dosage: 40 MG, UNK
  9. REPATHA [Suspect]
     Active Substance: EVOLOCUMAB
     Indication: HYPERCHOLESTEROLAEMIA
     Dosage: 140 MG, QMO
     Route: 058
     Dates: start: 20161019, end: 20161118
  10. CHOLEBINE [Concomitant]
     Active Substance: COLESTILAN CHLORIDE
     Dosage: 3.62 G, UNK
  11. BAYASPIRIN [Concomitant]
     Active Substance: ASPIRIN
     Dosage: 100 MG, UNK
  12. NEXIUM [Concomitant]
     Active Substance: ESOMEPRAZOLE MAGNESIUM
     Dosage: 10 MG, UNK
  13. TANATRIL [Concomitant]
     Active Substance: IMIDAPRIL
     Dosage: 2.5 MG, UNK
  14. PERYCIT [Concomitant]
     Dosage: 1500 MG, UNK

REACTIONS (3)
  - Blood creatine phosphokinase increased [Recovering/Resolving]
  - Myalgia [Recovering/Resolving]
  - Off label use [Unknown]

NARRATIVE: CASE EVENT DATE: 20161118
